FAERS Safety Report 6511125-9 (Version None)
Quarter: 2009Q4

REPORT INFORMATION
  Report Type: 
  Country: None (occurrence: None)
  Receive Date: 20091222
  Receipt Date: 20091217
  Transmission Date: 20100525
  Serious: Yes (Hospitalization)
  Sender: FDA-Public Use
  Company Number: US-KINGPHARMUSA00001-K200800590

PATIENT

DRUGS (11)
  1. ALTACE [Suspect]
     Dosage: UNK
     Route: 048
  2. ^CHAMPIX^ [Suspect]
     Indication: SMOKING CESSATION THERAPY
     Dosage: 0.5 MG, BID
     Dates: start: 20071008
  3. ALENDRONIC ACID [Concomitant]
  4. ASPIRIN [Concomitant]
  5. DILTIAZEM [Concomitant]
  6. GLYCERYL TRINITRATE [Concomitant]
  7. LANSOPRAZOLE [Concomitant]
  8. PREDNISOLONE [Concomitant]
  9. QUININE SULPHATE [Concomitant]
  10. SERETIDE                           /01420901/ [Concomitant]
  11. SIMVASTATIN [Concomitant]

REACTIONS (3)
  - AMNESIA [None]
  - HEAD INJURY [None]
  - SYNCOPE [None]
